FAERS Safety Report 6721904-0 (Version None)
Quarter: 2010Q2

REPORT INFORMATION
  Report Type: 
  Country: None (occurrence: None)
  Receive Date: 20100512
  Receipt Date: 20100429
  Transmission Date: 20101027
  Serious: Yes (Hospitalization)
  Sender: FDA-Public Use
  Company Number: FR-ELI_LILLY_AND_COMPANY-FR201004008063

PATIENT
  Sex: Male

DRUGS (7)
  1. GEMZAR [Suspect]
     Indication: PANCREATIC CARCINOMA METASTATIC
     Dosage: 1000 MG, OTHER
     Route: 042
     Dates: start: 20100120, end: 20100311
  2. TARCEVA [Concomitant]
     Indication: PANCREATIC CARCINOMA METASTATIC
     Dosage: 400 MG, DAILY (1/D)
     Route: 048
     Dates: start: 20100120, end: 20100323
  3. LOVENOX [Concomitant]
     Dosage: 0.4 ML, UNKNOWN
  4. XALATAN [Concomitant]
  5. ARANESP [Concomitant]
     Dates: start: 20100320
  6. AUGMENTIN '125' [Concomitant]
     Dates: start: 20100319, end: 20100323
  7. CIFLOX [Concomitant]
     Dates: start: 20100319, end: 20100323

REACTIONS (3)
  - DYSPNOEA [None]
  - INTERSTITIAL LUNG DISEASE [None]
  - PYREXIA [None]
